FAERS Safety Report 5066893-2 (Version None)
Quarter: 2006Q3

REPORT INFORMATION
  Report Type: 
  Country: None (occurrence: None)
  Receive Date: 20060726
  Receipt Date: 20060712
  Transmission Date: 20061208
  Serious: No
  Sender: FDA-Public Use
  Company Number: SP00834

PATIENT
  Age: 24 Year
  Sex: Female
  Weight: 58.9676 kg

DRUGS (2)
  1. COLAZAL [Suspect]
     Indication: COLITIS ULCERATIVE
     Dosage: 6 CAPSULES DAILY, ORAL
     Route: 048
     Dates: start: 20060201, end: 20060301
  2. PREDNISONE TAB [Concomitant]

REACTIONS (8)
  - BLISTER [None]
  - EMOTIONAL DISORDER [None]
  - PAIN [None]
  - REFUSAL OF TREATMENT BY PATIENT [None]
  - SCAB [None]
  - SCAR [None]
  - SKIN DISCOLOURATION [None]
  - ULCER [None]
